FAERS Safety Report 17609124 (Version 1)
Quarter: 2020Q2

REPORT INFORMATION
  Report Type: Spontaneous
  Country: IN (occurrence: IN)
  Receive Date: 20200401
  Receipt Date: 20200401
  Transmission Date: 20200713
  Serious: Yes (Death, Other)
  Sender: FDA-Public Use
  Company Number: IN-LUPIN PHARMACEUTICALS INC.-2020-01515

PATIENT
  Age: 70 Year
  Sex: Female

DRUGS (6)
  1. BUDESONIDE. [Concomitant]
     Active Substance: BUDESONIDE
     Indication: PULMONARY NOCARDIOSIS
     Dosage: UNK
     Route: 065
  2. AMOXICILLIN SODIUM;CLAVULANATE POTASSIUM [Concomitant]
     Active Substance: AMOXICILLIN\CLAVULANATE POTASSIUM
     Indication: PULMONARY NOCARDIOSIS
     Dosage: 2 GRAM, TID
     Route: 065
  3. IPRATROPIUM BROMIDE. [Concomitant]
     Active Substance: IPRATROPIUM BROMIDE
     Indication: PULMONARY NOCARDIOSIS
     Dosage: UNK
     Route: 065
  4. AZITHROMYCIN ANHYDROUS. [Concomitant]
     Active Substance: AZITHROMYCIN ANHYDROUS
     Indication: PULMONARY NOCARDIOSIS
     Dosage: 500 MILLIGRAM, QD
     Route: 065
  5. SALBUTAMOL [Concomitant]
     Active Substance: ALBUTEROL
     Indication: PULMONARY NOCARDIOSIS
     Dosage: UNK
     Route: 065
  6. SULFAMETHOXAZOLE AND TRIMETHOPRIM [Suspect]
     Active Substance: SULFAMETHOXAZOLE\TRIMETHOPRIM
     Indication: PULMONARY NOCARDIOSIS
     Dosage: 160/800 MG, BID (RECEIVED A SINGLE DOSE)
     Route: 065

REACTIONS (2)
  - Pulmonary nocardiosis [Fatal]
  - Drug resistance [Unknown]
